FAERS Safety Report 12791588 (Version 1)
Quarter: 2016Q3

REPORT INFORMATION
  Report Type: Spontaneous
  Country: GB (occurrence: GB)
  Receive Date: 20160929
  Receipt Date: 20160929
  Transmission Date: 20161109
  Serious: Yes (Other)
  Sender: FDA-Public Use
  Company Number: GB-TEVA-694938ACC

PATIENT

DRUGS (1)
  1. CETIRIZINE [Suspect]
     Active Substance: CETIRIZINE HYDROCHLORIDE
     Indication: SEASONAL ALLERGY
     Dosage: UNK
     Route: 065

REACTIONS (6)
  - Withdrawal syndrome [Unknown]
  - Sneezing [Unknown]
  - Dyspnoea [Unknown]
  - Pruritus [Unknown]
  - Asthma [Unknown]
  - Urticaria [Unknown]
